FAERS Safety Report 24388350 (Version 1)
Quarter: 2024Q4

REPORT INFORMATION
  Report Type: Spontaneous
  Country: CN (occurrence: CN)
  Receive Date: 20241002
  Receipt Date: 20241002
  Transmission Date: 20250114
  Serious: Yes (Life-Threatening, Hospitalization, Other)
  Sender: NOVARTIS
  Company Number: CN-002147023-NVSC2024CN194575

PATIENT
  Age: 73 Year
  Sex: Male
  Weight: 50 kg

DRUGS (2)
  1. PAZOPANIB [Suspect]
     Active Substance: PAZOPANIB
     Indication: Targeted cancer therapy
     Dosage: 0.600 G, QD
     Route: 048
     Dates: start: 20240711
  2. PAZOPANIB [Suspect]
     Active Substance: PAZOPANIB
     Dosage: 0.4 G
     Route: 065
     Dates: end: 20240903

REACTIONS (9)
  - Platelet count decreased [Not Recovered/Not Resolved]
  - White blood cell count decreased [Unknown]
  - Febrile infection [Recovering/Resolving]
  - Palmar-plantar erythrodysaesthesia syndrome [Unknown]
  - Pain in extremity [Unknown]
  - Erythema [Unknown]
  - Decreased activity [Unknown]
  - Haemoglobin decreased [Unknown]
  - Neutrophil count decreased [Unknown]

NARRATIVE: CASE EVENT DATE: 20240725
